FAERS Safety Report 11907228 (Version 4)
Quarter: 2016Q1

REPORT INFORMATION
  Report Type: Report from Study
  Country: FR (occurrence: FR)
  Receive Date: 20160111
  Receipt Date: 20160204
  Transmission Date: 20160526
  Serious: Yes (Other)
  Sender: FDA-Public Use
  Company Number: FR-EISAI MEDICAL RESEARCH-EC-2016-013398

PATIENT
  Age: 6 Year
  Sex: Female
  Weight: 15 kg

DRUGS (5)
  1. LENVATINIB [Suspect]
     Active Substance: LENVATINIB
     Route: 048
     Dates: start: 20160107
  2. PARACETAMOL [Concomitant]
     Active Substance: ACETAMINOPHEN
  3. CLONAZEPAM. [Concomitant]
     Active Substance: CLONAZEPAM
  4. LENVATINIB [Suspect]
     Active Substance: LENVATINIB
     Indication: RHABDOMYOSARCOMA RECURRENT
     Route: 048
     Dates: start: 20150914, end: 20160105
  5. MACROGOL [Concomitant]
     Active Substance: POLYETHYLENE GLYCOLS

REACTIONS (1)
  - Ejection fraction decreased [Recovered/Resolved]

NARRATIVE: CASE EVENT DATE: 20160106
